FAERS Safety Report 6813892-3 (Version None)
Quarter: 2010Q3

REPORT INFORMATION
  Report Type: 
  Country: None (occurrence: None)
  Receive Date: 20100702
  Receipt Date: 20100625
  Transmission Date: 20110219
  Serious: Yes (Disabling)
  Sender: FDA-Public Use
  Company Number: CA-MERCK-1006USA04058

PATIENT
  Age: 67 Year
  Sex: Female
  Weight: 69 kg

DRUGS (9)
  1. FOSAMAX [Suspect]
     Route: 048
  2. ACTONEL [Suspect]
     Route: 065
  3. NOVO-ALENDRONATE [Suspect]
     Route: 065
  4. ALENDRONATE SODIUM [Suspect]
     Route: 065
  5. BISOPROLOL [Concomitant]
     Route: 065
  6. CALCIUM (UNSPECIFIED) [Concomitant]
     Route: 065
  7. MAGNESIUM (UNSPECIFIED) [Concomitant]
     Route: 065
  8. SYNTHROID [Concomitant]
     Route: 065
  9. VITAMIN D (UNSPECIFIED) [Concomitant]
     Route: 065

REACTIONS (6)
  - DIPLOPIA [None]
  - EAR PAIN [None]
  - EYE PAIN [None]
  - HEADACHE [None]
  - PAIN [None]
  - PAIN IN JAW [None]
